FAERS Safety Report 24101113 (Version 2)
Quarter: 2024Q3

REPORT INFORMATION
  Report Type: Spontaneous
  Country: US (occurrence: US)
  Receive Date: 20240717
  Receipt Date: 20240717
  Transmission Date: 20241016
  Serious: No
  Sender: NOVO NORDISK
  Company Number: US-NOVOPROD-1187505

PATIENT
  Age: 58 Year
  Sex: Female

DRUGS (6)
  1. OZEMPIC [Suspect]
     Active Substance: SEMAGLUTIDE
     Indication: Glucose tolerance impaired
     Dosage: 2 MG, QW
     Route: 058
     Dates: start: 202305, end: 20240215
  2. OZEMPIC [Suspect]
     Active Substance: SEMAGLUTIDE
     Indication: Obstructive sleep apnoea syndrome
  3. OZEMPIC [Suspect]
     Active Substance: SEMAGLUTIDE
     Indication: Crohn^s disease
  4. OZEMPIC [Suspect]
     Active Substance: SEMAGLUTIDE
     Indication: Obesity
  5. OZEMPIC [Suspect]
     Active Substance: SEMAGLUTIDE
     Indication: Crohn^s disease
  6. OZEMPIC [Suspect]
     Active Substance: SEMAGLUTIDE
     Indication: Glucose tolerance impaired
     Dosage: 1 MG
     Route: 058

REACTIONS (7)
  - Burning sensation [Recovered/Resolved]
  - Brain fog [Unknown]
  - Sunburn [Unknown]
  - Fatigue [Not Recovered/Not Resolved]
  - Adverse drug reaction [Unknown]
  - Product use in unapproved indication [Unknown]
  - Off label use [Unknown]

NARRATIVE: CASE EVENT DATE: 20240124
